FAERS Safety Report 10470404 (Version 1)
Quarter: 2014Q3

REPORT INFORMATION
  Report Type: Spontaneous
  Country: US (occurrence: None)
  Receive Date: 20140922
  Receipt Date: 20140922
  Transmission Date: 20150326
  Serious: Yes (Congenital Anomaly)
  Sender: FDA-Public Use
  Company Number: None

PATIENT
  Age: 1 Day
  Sex: Female

DRUGS (2)
  1. ASPRIN [Suspect]
     Active Substance: ASPIRIN
     Indication: GESTATIONAL HYPERTENSION
     Dosage: 81 MG  ONCE DAILY TAKEN BY MOUTH?7 MONTHS  ISH
     Route: 048
  2. ASPRIN [Suspect]
     Active Substance: ASPIRIN
     Indication: PROPHYLAXIS
     Dosage: 81 MG  ONCE DAILY TAKEN BY MOUTH?7 MONTHS  ISH
     Route: 048

REACTIONS (2)
  - Maternal drugs affecting foetus [None]
  - Anomalous pulmonary venous connection [None]

NARRATIVE: CASE EVENT DATE: 20140619
